FAERS Safety Report 9376701 (Version 1)
Quarter: 2013Q3

REPORT INFORMATION
  Report Type: Spontaneous
  Country: US (occurrence: US)
  Receive Date: 20130701
  Receipt Date: 20130701
  Transmission Date: 20140515
  Serious: Yes (Hospitalization, Other)
  Sender: FDA-Public Use
  Company Number: US-SANOFI-AVENTIS-2013SA064452

PATIENT
  Sex: Female

DRUGS (2)
  1. LANTUS SOLOSTAR [Suspect]
     Indication: TYPE 2 DIABETES MELLITUS
     Dosage: INITIALLY 15 UNITS THEN 13 UNITS DOSE:13 UNIT(S)
     Route: 051
     Dates: start: 2007
  2. SOLOSTAR [Suspect]
     Indication: TYPE 2 DIABETES MELLITUS
     Dates: start: 2007

REACTIONS (6)
  - Lower limb fracture [Unknown]
  - Fall [Unknown]
  - Loss of consciousness [Unknown]
  - Eye oedema [Unknown]
  - Visual acuity reduced [Unknown]
  - Blood glucose increased [Not Recovered/Not Resolved]
